FAERS Safety Report 4819085-3 (Version None)
Quarter: 2005Q4

REPORT INFORMATION
  Report Type: 
  Country: None (occurrence: None)
  Receive Date: 20051102
  Receipt Date: 20051102
  Transmission Date: 20060501
  Serious: Yes (Life-Threatening)
  Sender: FDA-Public Use
  Company Number: None

PATIENT
  Age: 59 Year
  Sex: Female
  Weight: 60.782 kg

DRUGS (8)
  1. COUMADIN [Suspect]
     Indication: DEEP VEIN THROMBOSIS
     Dosage: PO
     Route: 048
  2. ATENOLOL [Concomitant]
  3. POTASSIUM [Concomitant]
  4. GLUCOTROL XL [Concomitant]
  5. LASIX [Concomitant]
  6. ASACOL [Concomitant]
  7. SYNTHROID [Concomitant]
  8. ACTOS [Concomitant]

REACTIONS (6)
  - HAEMORRHAGE INTRACRANIAL [None]
  - HEADACHE [None]
  - HYPERHIDROSIS [None]
  - INTERNATIONAL NORMALISED RATIO INCREASED [None]
  - LOSS OF CONSCIOUSNESS [None]
  - NAUSEA [None]
